FAERS Safety Report 7037299-1 (Version None)
Quarter: 2010Q4

REPORT INFORMATION
  Report Type: 
  Country: None (occurrence: None)
  Receive Date: 20101011
  Receipt Date: 20100929
  Transmission Date: 20110411
  Serious: Yes (Hospitalization)
  Sender: FDA-Public Use
  Company Number: NL-ELI_LILLY_AND_COMPANY-NL200907000674

PATIENT
  Sex: Female

DRUGS (2)
  1. PEMETREXED [Suspect]
     Indication: NON-SMALL CELL LUNG CANCER
     Dosage: 500 MG/M2, ON D1 EVERY 21 DAYS
     Route: 042
     Dates: start: 20090625
  2. CISPLATIN [Suspect]
     Indication: NON-SMALL CELL LUNG CANCER
     Dosage: 75 MG/M2, ON D1 EVERY 21 DAYS
     Route: 042
     Dates: start: 20090625

REACTIONS (1)
  - HERPES ZOSTER [None]
